FAERS Safety Report 9457208 (Version 1)
Quarter: 2013Q3

REPORT INFORMATION
  Report Type: Spontaneous
  Country: US (occurrence: US)
  Receive Date: 20130814
  Receipt Date: 20130814
  Transmission Date: 20140515
  Serious: Yes (Other)
  Sender: FDA-Public Use
  Company Number: US-RANBAXY-2013US-72209

PATIENT
  Sex: Female

DRUGS (2)
  1. TRIAMCINOLONE [Suspect]
     Indication: CYSTOID MACULAR OEDEMA
     Dosage: UNK
     Route: 031
  2. BEVACIZUMAB [Suspect]
     Indication: CYSTOID MACULAR OEDEMA
     Dosage: UNK
     Route: 031

REACTIONS (2)
  - Mycotic endophthalmitis [Unknown]
  - Product contamination microbial [Unknown]
